FAERS Safety Report 7266439-4 (Version None)
Quarter: 2011Q1

REPORT INFORMATION
  Report Type: 
  Country: None (occurrence: None)
  Receive Date: 20110131
  Receipt Date: 20110117
  Transmission Date: 20110831
  Serious: Yes (Hospitalization)
  Sender: FDA-Public Use
  Company Number: GB-MYLANLABS-2011S1001092

PATIENT
  Age: 70 Year
  Sex: Male
  Weight: 92.6 kg

DRUGS (1)
  1. SIMVASTATIN [Suspect]
     Indication: PRODUCT USED FOR UNKNOWN INDICATION
     Dates: start: 20101219, end: 20110101

REACTIONS (3)
  - BALANCE DISORDER [None]
  - MALAISE [None]
  - DIZZINESS [None]
